FAERS Safety Report 18264327 (Version 1)
Quarter: 2020Q3

REPORT INFORMATION
  Report Type: Spontaneous
  Country: US (occurrence: US)
  Receive Date: 20200914
  Receipt Date: 20200914
  Transmission Date: 20201103
  Serious: Yes (Other)
  Sender: FDA-Public Use
  Company Number: US-COOPERSURGICAL, INC.-US-2020CPS002151

PATIENT
  Age: 22 Year
  Sex: Female
  Weight: 97.96 kg

DRUGS (2)
  1. PARAGARD T 380A [Suspect]
     Active Substance: COPPER
     Indication: CONTRACEPTION
     Dosage: UNK
     Route: 015
     Dates: start: 20200227, end: 20200828
  2. VITAMINS                           /00067501/ [Concomitant]
     Active Substance: VITAMINS
     Indication: VITAMIN SUPPLEMENTATION
     Dosage: UNK
     Route: 065

REACTIONS (3)
  - Device expulsion [Recovered/Resolved]
  - Road traffic accident [Recovered/Resolved]
  - Dysfunctional uterine bleeding [Unknown]

NARRATIVE: CASE EVENT DATE: 202008
